FAERS Safety Report 18528331 (Version 13)
Quarter: 2023Q2

REPORT INFORMATION
  Report Type: Spontaneous
  Country: US (occurrence: US)
  Receive Date: 20201120
  Receipt Date: 20230406
  Transmission Date: 20230722
  Serious: Yes (Death)
  Sender: FDA-Public Use
  Company Number: US-PFIZER INC-2020455831

PATIENT
  Age: 73 Year
  Sex: Male

DRUGS (2)
  1. INLYTA [Suspect]
     Active Substance: AXITINIB
     Indication: Renal cancer
     Dosage: 5 MG
  2. INLYTA [Suspect]
     Active Substance: AXITINIB
     Dosage: 60 MG

REACTIONS (10)
  - Death [Fatal]
  - Product dose omission issue [Unknown]
  - Therapeutic response unexpected [Recovered/Resolved]
  - Blood pressure abnormal [Unknown]
  - Fatigue [Unknown]
  - Blood pressure increased [Unknown]
  - Dysphonia [Unknown]
  - Stomatitis [Unknown]
  - Rash [Unknown]
  - Fatigue [Unknown]

NARRATIVE: CASE EVENT DATE: 20221226
